FAERS Safety Report 12384170 (Version 2)
Quarter: 2016Q3

REPORT INFORMATION
  Report Type: Spontaneous
  Country: IT (occurrence: IT)
  Receive Date: 20160519
  Receipt Date: 20160702
  Transmission Date: 20161109
  Serious: Yes (Other)
  Sender: FDA-Public Use
  Company Number: IT-ACCORD-040585

PATIENT
  Age: 68 Year
  Sex: Male
  Weight: 60 kg

DRUGS (2)
  1. FLUOROURACIL. [Suspect]
     Active Substance: FLUOROURACIL
     Indication: METASTATIC GASTRIC CANCER
     Dosage: ALSO RECEIVED 2808 MG INTRVAENOUS DRIP.?LAST RECEIVED ON 19-APR-2016, DURATION : 225 DAYS
     Route: 040
     Dates: start: 20150908
  2. OXALIPLATIN SUN [Suspect]
     Active Substance: OXALIPLATIN
     Indication: METASTATIC GASTRIC CANCER
     Dosage: STRENGTH 5 MG/ML?LAST RECEIVED ON 19-APR-2016, DURATION : 225 DAYS
     Route: 042
     Dates: start: 20150908

REACTIONS (1)
  - Hyperbilirubinaemia [Unknown]

NARRATIVE: CASE EVENT DATE: 20160418
